FAERS Safety Report 8246618-X (Version None)
Quarter: 2012Q1

REPORT INFORMATION
  Report Type: 
  Country: None (occurrence: None)
  Receive Date: 20120330
  Receipt Date: 20120323
  Transmission Date: 20120608
  Serious: Yes (Other)
  Sender: FDA-Public Use
  Company Number: US-PFIZER INC-2012078327

PATIENT
  Sex: Female

DRUGS (4)
  1. TOVIAZ [Suspect]
     Dosage: UNK
  2. DETROL LA [Suspect]
     Dosage: UNK
  3. VESICARE [Suspect]
     Dosage: UNK
  4. OXYBUTYNIN CHLORIDE [Suspect]
     Dosage: UNK

REACTIONS (11)
  - ABDOMINAL PAIN UPPER [None]
  - OROPHARYNGEAL PAIN [None]
  - VISION BLURRED [None]
  - HAEMORRHOIDS [None]
  - FLATULENCE [None]
  - DRY MOUTH [None]
  - CONSTIPATION [None]
  - ORAL PAIN [None]
  - CONFUSIONAL STATE [None]
  - DEHYDRATION [None]
  - DRY SKIN [None]
